FAERS Safety Report 8349481-1 (Version None)
Quarter: 2012Q2

REPORT INFORMATION
  Report Type: 
  Country: None (occurrence: None)
  Receive Date: 20120510
  Receipt Date: 20100913
  Transmission Date: 20120825
  Serious: No
  Sender: FDA-Public Use
  Company Number: US-TEVA-2010004871

PATIENT
  Sex: Female
  Weight: 52.21 kg

DRUGS (12)
  1. NUVIGIL [Suspect]
     Indication: FATIGUE
     Dosage: 150 MILLIGRAM;
     Route: 048
     Dates: start: 20100813, end: 20100827
  2. DITROPAN [Concomitant]
     Dates: start: 20070101
  3. NEXIUM [Concomitant]
  4. TYSABRI [Concomitant]
     Dates: start: 20080101
  5. MINIPRESS [Concomitant]
  6. VITAMIN B-12 [Concomitant]
  7. ZINC SULFATE [Concomitant]
  8. NORVASC [Concomitant]
  9. MOBIC [Concomitant]
  10. NUVIGIL [Suspect]
     Dosage: 250 MILLIGRAM;
     Route: 048
     Dates: start: 20100828, end: 20100904
  11. FLUCONAZOLE [Concomitant]
  12. SODIUM CHLORIDE [Concomitant]

REACTIONS (2)
  - DYSPEPSIA [None]
  - DRUG INEFFECTIVE FOR UNAPPROVED INDICATION [None]
